FAERS Safety Report 16778204 (Version 2)
Quarter: 2019Q3

REPORT INFORMATION
  Report Type: Report from Study
  Country: None (occurrence: CA)
  Receive Date: 20190905
  Receipt Date: 20190908
  Transmission Date: 20191005
  Serious: Yes (Other)
  Sender: FDA-Public Use
  Company Number: CA-ABBVIE-19K-028-2911804-00

PATIENT
  Sex: Female

DRUGS (1)
  1. HUMIRA [Suspect]
     Active Substance: ADALIMUMAB
     Indication: CROHN^S DISEASE
     Dosage: HUMIRA VIAL
     Route: 058
     Dates: start: 20161028

REACTIONS (5)
  - General physical health deterioration [Unknown]
  - Gastrointestinal sounds abnormal [Not Recovered/Not Resolved]
  - Dyschezia [Not Recovered/Not Resolved]
  - Abdominal distension [Not Recovered/Not Resolved]
  - Intestinal obstruction [Recovered/Resolved]
